FAERS Safety Report 23602107 (Version 1)
Quarter: 2024Q1

REPORT INFORMATION
  Report Type: Spontaneous
  Country: US (occurrence: None)
  Receive Date: 20240306
  Receipt Date: 20240306
  Transmission Date: 20240410
  Serious: Yes (Death)
  Sender: FDA-Public Use
  Company Number: None

PATIENT
  Age: 82 Year
  Sex: Female
  Weight: 113 kg

DRUGS (1)
  1. MEROPENEM [Suspect]
     Active Substance: MEROPENEM
     Indication: Urinary tract infection
     Dosage: 1000 MG ONCE INTRAVENOUS
     Route: 042
     Dates: start: 20240223, end: 20240223

REACTIONS (17)
  - Cough [None]
  - Infusion related reaction [None]
  - Cardiac arrest [None]
  - Pulseless electrical activity [None]
  - Unresponsive to stimuli [None]
  - Anaphylactic reaction [None]
  - Erythema [None]
  - Respiratory acidosis [None]
  - Metabolic acidosis [None]
  - Lactic acidosis [None]
  - Urinary tract infection [None]
  - Shock [None]
  - Pneumothorax [None]
  - Emphysema [None]
  - Culture urine positive [None]
  - Escherichia infection [None]
  - Therapy non-responder [None]

NARRATIVE: CASE EVENT DATE: 20240223
